FAERS Safety Report 19885623 (Version 2)
Quarter: 2021Q3

REPORT INFORMATION
  Report Type: Report from Study
  Country: AT (occurrence: AT)
  Receive Date: 20210927
  Receipt Date: 20210928
  Transmission Date: 20211014
  Serious: Yes (Other)
  Sender: FDA-Public Use
  Company Number: AT-MYLANLABS-2021M1064612

PATIENT
  Age: 72 Year
  Sex: Female
  Weight: 53 kg

DRUGS (14)
  1. FULVESTRANT. [Suspect]
     Active Substance: FULVESTRANT
     Indication: HER2 POSITIVE BREAST CANCER
     Dosage: 500 MILLIGRAM, Q28D (4 WEEKS)
     Route: 058
     Dates: start: 20200716
  2. TRASTUZUMAB. [Suspect]
     Active Substance: TRASTUZUMAB
     Indication: HER2 POSITIVE BREAST CANCER
     Dosage: 354 MILLIGRAM, Q3W (MOST RECENT DOSE PRIOR TO THE EVENT: 27/FEB/2020)
     Route: 041
     Dates: start: 20160629
  3. THROMBO ASS [Concomitant]
     Active Substance: ASPIRIN
     Dosage: ONGOING = CHECKED
     Dates: start: 20170115
  4. DOCETAXEL. [Suspect]
     Active Substance: DOCETAXEL
     Indication: HER2 POSITIVE BREAST CANCER
     Dosage: 75 MILLIGRAM/SQ. METER, Q3W (RECENT DOSE ON 13/OCT/2016)
     Route: 042
     Dates: start: 20160629
  5. NOMEXOR [Concomitant]
     Active Substance: NEBIVOLOL HYDROCHLORIDE
     Dosage: ONGOING = CHECKED
     Dates: start: 20170115
  6. ADVANTAN [Concomitant]
     Active Substance: METHYLPREDNISOLONE ACEPONATE
     Indication: PALMAR-PLANTAR ERYTHRODYSAESTHESIA SYNDROME
     Dosage: ONGOING = CHECKED
     Dates: start: 20201111
  7. LETROZOLE. [Suspect]
     Active Substance: LETROZOLE
     Indication: HER2 POSITIVE BREAST CANCER
     Dosage: RECENT DOSE ON 29/JUN/2020
     Route: 048
     Dates: start: 20161021
  8. RIBOCICLIB. [Suspect]
     Active Substance: RIBOCICLIB
     Indication: HER2 POSITIVE BREAST CANCER
     Dosage: RECENT DOSE ON 14/AUG/2020
     Route: 048
     Dates: start: 20200716
  9. LISINOPRIL. [Concomitant]
     Active Substance: LISINOPRIL
     Dosage: ONGOING= CHECKED
     Dates: start: 20170115
  10. DIPRODERM                          /00008504/ [Concomitant]
     Indication: RASH
     Dosage: ONGOING = CHECKED
     Dates: start: 20180621
  11. BETAISODONA [Concomitant]
     Active Substance: POVIDONE-IODINE
     Indication: PARONYCHIA
     Dosage: ONGOING = CHECKED
     Dates: start: 20201111
  12. DENOSUMAB [Suspect]
     Active Substance: DENOSUMAB
     Indication: HER2 POSITIVE BREAST CANCER
     Dosage: 120 MILLIGRAM, Q28D (RECENT DOSE ON 26/JAN/2021)
     Route: 058
     Dates: start: 20161121
  13. PERTUZUMAB. [Suspect]
     Active Substance: PERTUZUMAB
     Indication: HER2 POSITIVE BREAST CANCER
     Dosage: 420 MILLIGRAM, Q3W (MOST RECENT DOSE PRIOR TO THE EVENT: 27/FEB/2020)
     Route: 042
     Dates: start: 20160629
  14. EUTHYROX [Concomitant]
     Active Substance: LEVOTHYROXINE SODIUM
     Dosage: ONGOING = NOT CHECKED
     Dates: end: 20210222

REACTIONS (1)
  - Osteonecrosis of jaw [Recovering/Resolving]

NARRATIVE: CASE EVENT DATE: 20201215
